FAERS Safety Report 10022676 (Version 3)
Quarter: 2014Q2

REPORT INFORMATION
  Report Type: Spontaneous
  Country: US (occurrence: US)
  Receive Date: 20140319
  Receipt Date: 20140428
  Transmission Date: 20141212
  Serious: Yes (Other)
  Sender: FDA-Public Use
  Company Number: US-PFIZER INC-2014075069

PATIENT
  Age: 55 Year
  Sex: Male
  Weight: 93 kg

DRUGS (2)
  1. PRISTIQ [Suspect]
     Indication: DEPRESSION
     Dosage: HALF OF 50 MG TABLET DAILY
     Dates: start: 20140306
  2. TIROSINT [Suspect]
     Indication: THYROID DISORDER
     Dosage: 112 MG, DAILY

REACTIONS (9)
  - Pharyngeal oedema [Recovered/Resolved]
  - Swollen tongue [Recovered/Resolved]
  - Polyuria [Recovered/Resolved]
  - Urine flow decreased [Recovered/Resolved]
  - Feeling jittery [Recovered/Resolved]
  - Nervousness [Recovered/Resolved]
  - Sexual dysfunction [Recovered/Resolved]
  - Painful ejaculation [Recovered/Resolved]
  - Wrong technique in drug usage process [Unknown]
